FAERS Safety Report 15082200 (Version 2)
Quarter: 2018Q3

REPORT INFORMATION
  Report Type: Spontaneous
  Country: US (occurrence: US)
  Receive Date: 20180628
  Receipt Date: 20180705
  Transmission Date: 20181010
  Serious: Yes (Other)
  Sender: FDA-Public Use
  Company Number: US-DRREDDYS-USA/USA/18/0100887

PATIENT
  Age: 27 Year
  Sex: Female

DRUGS (1)
  1. LAMOTRIGINE TABLETS [Suspect]
     Active Substance: LAMOTRIGINE
     Indication: BIPOLAR II DISORDER
     Route: 048

REACTIONS (1)
  - Hypogammaglobulinaemia [Recovered/Resolved]
